FAERS Safety Report 8555980-X (Version None)
Quarter: 2012Q3

REPORT INFORMATION
  Report Type: 
  Country: None (occurrence: None)
  Receive Date: 20120801
  Receipt Date: 20120710
  Transmission Date: 20120928
  Serious: No
  Sender: FDA-Public Use
  Company Number: US-009507513-2012SP036932

PATIENT

DRUGS (1)
  1. IMPLANON [Suspect]

REACTIONS (2)
  - MEDICAL DEVICE COMPLICATION [None]
  - CONTUSION [None]
